FAERS Safety Report 5096287-5 (Version None)
Quarter: 2006Q3

REPORT INFORMATION
  Report Type: 
  Country: None (occurrence: None)
  Receive Date: 20060830
  Receipt Date: 20060816
  Transmission Date: 20061208
  Serious: Yes (Disabling, Other)
  Sender: FDA-Public Use
  Company Number: 14384

PATIENT
  Age: 58 Year
  Sex: Female

DRUGS (12)
  1. FLUOROURACIL [Suspect]
     Indication: CHEMOTHERAPY
     Dosage: 400 MG/M2 OTH/2400 MG/M2 OTH, IV
     Route: 042
     Dates: start: 20060706, end: 20060708
  2. HYOSCINE HBR HYT [Concomitant]
  3. MIDAZOLAM [Concomitant]
  4. OXYCODONE HCL [Concomitant]
  5. IRINOTECAN HCL [Concomitant]
  6. DIAZEPAM [Concomitant]
  7. IRBESARTAN [Concomitant]
  8. ESCITALOPRAM [Concomitant]
  9. LANSOPRAZOLE [Concomitant]
  10. MOVICOL [Concomitant]
  11. PREGABALIN [Concomitant]
  12. PARACETAMOL [Concomitant]

REACTIONS (2)
  - CONFUSIONAL STATE [None]
  - DEPRESSED LEVEL OF CONSCIOUSNESS [None]
